FAERS Safety Report 10637307 (Version 1)
Quarter: 2014Q4

REPORT INFORMATION
  Report Type: Spontaneous
  Country: US (occurrence: None)
  Receive Date: 20141203
  Receipt Date: 20141203
  Transmission Date: 20150529
  Serious: Yes (Life-Threatening)
  Sender: FDA-Public Use
  Company Number: None

PATIENT
  Age: 67 Year
  Sex: Male
  Weight: 51.4 kg

DRUGS (2)
  1. CEFTRIAXONE. [Suspect]
     Active Substance: CEFTRIAXONE
     Indication: SCROTAL INFLAMMATION
     Dates: start: 20140907, end: 20140907
  2. CEFTRIAXONE. [Suspect]
     Active Substance: CEFTRIAXONE
     Indication: ORCHITIS
     Dates: start: 20140907, end: 20140907

REACTIONS (20)
  - Fall [None]
  - Pulseless electrical activity [None]
  - Sinus bradycardia [None]
  - Ventricular tachycardia [None]
  - Hypotension [None]
  - Lactic acidosis [None]
  - Intestinal ischaemia [None]
  - Oliguria [None]
  - Encephalopathy [None]
  - Syncope [None]
  - Metabolic acidosis [None]
  - Hypoperfusion [None]
  - Anaphylactic shock [None]
  - Anoxia [None]
  - Dyspnoea [None]
  - Acute kidney injury [None]
  - Myocardial infarction [None]
  - Palpitations [None]
  - Respiratory failure [None]
  - Ventricular fibrillation [None]

NARRATIVE: CASE EVENT DATE: 20140907
